FAERS Safety Report 26080107 (Version 1)
Quarter: 2025Q4

REPORT INFORMATION
  Report Type: Spontaneous
  Country: US (occurrence: US)
  Receive Date: 20251124
  Receipt Date: 20251124
  Transmission Date: 20260117
  Serious: No
  Sender: ABBVIE
  Company Number: US-ABBVIE-6549593

PATIENT
  Age: 48 Year
  Sex: Female
  Weight: 71 kg

DRUGS (16)
  1. ARMOUR THYROID [Suspect]
     Active Substance: THYROID, PORCINE
     Indication: Autoimmune thyroiditis
     Dosage: FREQUENCY TEXT: 15 MG TWICE A DAY AND 30 MG TWICE A DAY, FORM STRENGTH: 90 MILLIGRAM.
     Route: 048
     Dates: start: 20240118
  2. EPIPEN [Concomitant]
     Active Substance: EPINEPHRINE
     Indication: Anaphylactic reaction
  3. PREDNISONE [Concomitant]
     Active Substance: PREDNISONE
     Indication: Steroid therapy
  4. ETHINYL ESTRADIOL\LEVONORGESTREL [Concomitant]
     Active Substance: ETHINYL ESTRADIOL\LEVONORGESTREL
     Indication: Endometriosis
  5. NALTREXONE [Concomitant]
     Active Substance: NALTREXONE
     Indication: Autoimmune disorder
     Dosage: LOW-DOSE NALTREXONE
  6. XOLAIR [Concomitant]
     Active Substance: OMALIZUMAB
     Indication: Mast cell activation syndrome
  7. CETIRIZINE [Concomitant]
     Active Substance: CETIRIZINE HYDROCHLORIDE
     Indication: Mast cell activation syndrome
  8. ProAir RespiClick Auto inhaler [Concomitant]
     Indication: Asthma
  9. DUONEB [Concomitant]
     Active Substance: ALBUTEROL SULFATE\IPRATROPIUM BROMIDE
     Indication: Asthma
  10. CHLORHEXIDINE [Concomitant]
     Active Substance: CHLORHEXIDINE
     Indication: Mouth ulceration
     Dosage: CHLOROHEXIDINE DENTAL RINSE
  11. HYDROXYCHLOROQUINE [Concomitant]
     Active Substance: HYDROXYCHLOROQUINE
     Indication: Autoimmune disorder
  12. FLUTICASONE [Concomitant]
     Active Substance: FLUTICASONE
     Indication: Asthma
     Dosage: FLUTICASONE 500/ SALMUTEROL 50 DISCUS
  13. Clotrimazole  Betamethasone Diproprinate [Concomitant]
     Indication: Eczema
     Dosage: CLOTRIMAZOLE  BETAMETHASONE DIPROPRINATE CRM
  14. FAMOTIDINE [Concomitant]
     Active Substance: FAMOTIDINE
     Indication: Gastrooesophageal reflux disease
  15. Cromolyn Sodium Concentrate [Concomitant]
     Indication: Mast cell activation syndrome
  16. MONTELUKAST [Concomitant]
     Active Substance: MONTELUKAST
     Indication: Mast cell activation syndrome

REACTIONS (2)
  - Hand fracture [Not Recovered/Not Resolved]
  - Skin laceration [Not Recovered/Not Resolved]

NARRATIVE: CASE EVENT DATE: 20251108
